FAERS Safety Report 15646898 (Version 1)
Quarter: 2018Q4

REPORT INFORMATION
  Report Type: Spontaneous
  Country: AR (occurrence: AR)
  Receive Date: 20181122
  Receipt Date: 20181122
  Transmission Date: 20190205
  Serious: Yes (Death)
  Sender: FDA-Public Use
  Company Number: AR-INCYTE CORPORATION-2018IN011875

PATIENT

DRUGS (1)
  1. JAKAVI [Suspect]
     Active Substance: RUXOLITINIB
     Indication: MYELOFIBROSIS
     Dosage: 25 MG, Q12H (EVERY 12 HRS 20+5) AS REPORTED
     Route: 065

REACTIONS (4)
  - Sepsis [Fatal]
  - Erythroblastosis [Unknown]
  - Hepatic failure [Fatal]
  - Platelet count increased [Unknown]
